FAERS Safety Report 8048143-8 (Version None)
Quarter: 2012Q1

REPORT INFORMATION
  Report Type: 
  Country: None (occurrence: None)
  Receive Date: 20120113
  Receipt Date: 20120113
  Transmission Date: 20120608
  Serious: Yes (Other)
  Sender: FDA-Public Use
  Company Number: None

PATIENT
  Age: 58 Year
  Sex: Male
  Weight: 117.7 kg

DRUGS (2)
  1. RIBAVIRIN [Suspect]
     Indication: HEPATITIS C
     Dosage: 1400 MG EVERY DAY PO
     Route: 048
     Dates: start: 20111013
  2. BOCEPREVIR [Suspect]
     Indication: HEPATITIS C
     Dosage: 800 MG TID PO
     Route: 048
     Dates: start: 20111211

REACTIONS (1)
  - ANAEMIA [None]
